FAERS Safety Report 6788054-9 (Version None)
Quarter: 2010Q2

REPORT INFORMATION
  Report Type: 
  Country: None (occurrence: None)
  Receive Date: 20100623
  Receipt Date: 20080911
  Transmission Date: 20101027
  Serious: No
  Sender: FDA-Public Use
  Company Number: US-PFIZER INC-2007093367

PATIENT
  Sex: Male
  Weight: 81.65 kg

DRUGS (5)
  1. XALATAN [Suspect]
     Indication: OPEN ANGLE GLAUCOMA
     Dates: start: 20030101
  2. ACETYLSALICYLIC ACID [Concomitant]
  3. MULTI-VITAMINS [Concomitant]
  4. LEXAPRO [Concomitant]
     Indication: DEPRESSION
  5. LOTREL [Concomitant]
     Indication: HYPERTENSION

REACTIONS (7)
  - BLOOD CHOLESTEROL INCREASED [None]
  - EYE IRRITATION [None]
  - EYE PRURITUS [None]
  - GLUCOSE TOLERANCE IMPAIRED [None]
  - HIGH DENSITY LIPOPROTEIN DECREASED [None]
  - LOW DENSITY LIPOPROTEIN INCREASED [None]
  - VISION BLURRED [None]
